FAERS Safety Report 6485916-7 (Version None)
Quarter: 2009Q4

REPORT INFORMATION
  Report Type: 
  Country: None (occurrence: None)
  Receive Date: 20091204
  Receipt Date: 20091130
  Transmission Date: 20100525
  Serious: No
  Sender: FDA-Public Use
  Company Number: 20097254

PATIENT
  Age: 37 Year
  Sex: Female

DRUGS (1)
  1. LIORESAL [Suspect]
     Indication: MUSCLE SPASTICITY
     Dosage: MCG, DAILY, INTRATHECAL
     Route: 037

REACTIONS (5)
  - CATHETER SITE DISCHARGE [None]
  - DEVICE RELATED INFECTION [None]
  - MENINGEAL DISORDER [None]
  - PAIN [None]
  - WOUND DEHISCENCE [None]
